FAERS Safety Report 13711104 (Version 3)
Quarter: 2017Q3

REPORT INFORMATION
  Report Type: Spontaneous
  Country: SK (occurrence: SK)
  Receive Date: 20170703
  Receipt Date: 20170808
  Transmission Date: 20171127
  Serious: Yes (Death, Hospitalization, Other)
  Sender: FDA-Public Use
  Company Number: SK-ARIAD-2017SK007656

PATIENT

DRUGS (41)
  1. CITALOPRAM [Concomitant]
     Active Substance: CITALOPRAM HYDROBROMIDE
     Dosage: 1 TBL.
     Route: 048
  2. SIOFOR [Concomitant]
     Active Substance: METFORMIN HYDROCHLORIDE
     Indication: DIABETES MELLITUS
     Dosage: 1000 MG, 1 TBL
  3. JANUVIA [Concomitant]
     Active Substance: SITAGLIPTIN PHOSPHATE
     Indication: DIABETES MELLITUS
     Dosage: 0-0-1 TBL
     Route: 048
  4. FRAXIPARINE [Concomitant]
     Active Substance: NADROPARIN CALCIUM
     Dosage: 0.4 ML, UNK
  5. PROTEVASC [Concomitant]
     Active Substance: TRIMETAZIDINE DIHYDROCHLORIDE
     Dosage: 1-0-1 TBL
     Route: 048
  6. MILURIT [Concomitant]
     Active Substance: ALLOPURINOL
     Dosage: 100 MG, UNK
  7. CITALOPRAM [Concomitant]
     Active Substance: CITALOPRAM HYDROBROMIDE
     Dosage: 1 TBL.
     Route: 048
  8. LUNALDIN [Concomitant]
     Dosage: 500 MG, TID
  9. SIOFOR [Concomitant]
     Active Substance: METFORMIN HYDROCHLORIDE
     Dosage: 1000 MG, 1 TBL
  10. JANUVIA [Concomitant]
     Active Substance: SITAGLIPTIN PHOSPHATE
     Dosage: 0-0-1 TBL
     Route: 048
  11. FRAXIPARINE [Concomitant]
     Active Substance: NADROPARIN CALCIUM
     Dosage: 0.4 ML, UNK
  12. MILURIT [Concomitant]
     Active Substance: ALLOPURINOL
     Dosage: 100 MG, UNK
  13. ICLUSIG [Suspect]
     Active Substance: PONATINIB
     Dosage: 15 MG, QOD
     Route: 048
     Dates: start: 20170207, end: 201702
  14. CITALOPRAM [Concomitant]
     Active Substance: CITALOPRAM HYDROBROMIDE
     Dosage: 1 TBL.
     Route: 048
  15. ICLUSIG [Suspect]
     Active Substance: PONATINIB
     Dosage: 30 MG, QD
     Route: 048
     Dates: start: 20160815
  16. ICLUSIG [Suspect]
     Active Substance: PONATINIB
     Dosage: 15 MG, QD
     Route: 048
     Dates: start: 201702, end: 20170307
  17. CITALOPRAM [Concomitant]
     Active Substance: CITALOPRAM HYDROBROMIDE
     Indication: DEPRESSION
     Dosage: 1 TBL.
     Route: 048
  18. CITALOPRAM [Concomitant]
     Active Substance: CITALOPRAM HYDROBROMIDE
     Dosage: 1 TBL.
     Route: 048
  19. LUNALDIN [Concomitant]
     Indication: BACK PAIN
     Dosage: 500 MG, TID
  20. LUNALDIN [Concomitant]
     Dosage: 500 MG, TID
  21. LUNALDIN [Concomitant]
     Dosage: 500 MG, TID
  22. SIOFOR [Concomitant]
     Active Substance: METFORMIN HYDROCHLORIDE
     Dosage: 1000 MG, 1 TBL
  23. SIOFOR [Concomitant]
     Active Substance: METFORMIN HYDROCHLORIDE
     Dosage: 1000 MG, 1 TBL
  24. SIOFOR [Concomitant]
     Active Substance: METFORMIN HYDROCHLORIDE
     Dosage: 1000 MG, 1 TBL
  25. JANUVIA [Concomitant]
     Active Substance: SITAGLIPTIN PHOSPHATE
     Dosage: 0-0-1 TBL
     Route: 048
  26. JANUVIA [Concomitant]
     Active Substance: SITAGLIPTIN PHOSPHATE
     Dosage: 0-0-1 TBL
     Route: 048
  27. CALTRATE PLUS                      /01438001/ [Concomitant]
     Active Substance: CALCIUM\CHOLECALCIFEROL\COPPER\MAGNESIUM\MANGANESE\ZINC
     Indication: OSTEOPOROSIS
     Dosage: 1 TBL
     Route: 048
  28. MILURIT [Concomitant]
     Active Substance: ALLOPURINOL
     Dosage: 100 MG, UNK
  29. LUNALDIN [Concomitant]
     Dosage: 500 MG, TID
  30. PROTEVASC [Concomitant]
     Active Substance: TRIMETAZIDINE DIHYDROCHLORIDE
     Dosage: 1-0-1 TBL
     Route: 048
  31. PROTEVASC [Concomitant]
     Active Substance: TRIMETAZIDINE DIHYDROCHLORIDE
     Dosage: 1-0-1 TBL
     Route: 048
  32. MILURIT [Concomitant]
     Active Substance: ALLOPURINOL
     Indication: BLOOD URIC ACID INCREASED
     Dosage: 100 MG, UNK
  33. FRAXIPARINE [Concomitant]
     Active Substance: NADROPARIN CALCIUM
     Dosage: 0.4 ML, UNK
  34. JANUVIA [Concomitant]
     Active Substance: SITAGLIPTIN PHOSPHATE
     Dosage: 0-0-1 TBL
     Route: 048
  35. PROTEVASC [Concomitant]
     Active Substance: TRIMETAZIDINE DIHYDROCHLORIDE
     Dosage: 1-0-1 TBL
     Route: 048
  36. MILURIT [Concomitant]
     Active Substance: ALLOPURINOL
     Dosage: 100 MG, UNK
  37. ICLUSIG [Suspect]
     Active Substance: PONATINIB
     Indication: CHRONIC MYELOID LEUKAEMIA
     Dosage: 15 MG, QD
     Route: 048
     Dates: start: 201603
  38. ICLUSIG [Suspect]
     Active Substance: PONATINIB
     Dosage: 15 MG, QOD
     Route: 048
  39. FRAXIPARINE [Concomitant]
     Active Substance: NADROPARIN CALCIUM
     Indication: CARDIAC DISORDER
     Dosage: 0.4 ML, UNK
  40. FRAXIPARINE [Concomitant]
     Active Substance: NADROPARIN CALCIUM
     Dosage: 0.4 ML, UNK
  41. PROTEVASC [Concomitant]
     Active Substance: TRIMETAZIDINE DIHYDROCHLORIDE
     Indication: MYOCARDIAL ISCHAEMIA
     Dosage: 1-0-1 TBL
     Route: 048

REACTIONS (3)
  - Death [Fatal]
  - Radicular syndrome [Unknown]
  - Hypertensive crisis [Unknown]

NARRATIVE: CASE EVENT DATE: 20170124
